FAERS Safety Report 4305851-X (Version None)
Quarter: 2004Q1

REPORT INFORMATION
  Report Type: 
  Country: None (occurrence: None)
  Receive Date: 20040225
  Receipt Date: 20040217
  Transmission Date: 20041129
  Serious: Yes (Life-Threatening, Hospitalization)
  Sender: FDA-Public Use
  Company Number: OPTN-PR-0402S-0002

PATIENT
  Age: 57 Year
  Sex: Female

DRUGS (1)
  1. OPTISON [Suspect]
     Indication: VENTRICULAR DYSFUNCTION
     Dosage: 1 ML, SINGLE DOSE, I.V.
     Route: 042
     Dates: start: 20040213, end: 20040213

REACTIONS (6)
  - ANAPHYLACTIC REACTION [None]
  - CHEST PAIN [None]
  - DYSPNOEA [None]
  - ERYTHEMA [None]
  - FACE OEDEMA [None]
  - OXYGEN SATURATION DECREASED [None]
